FAERS Safety Report 4391874-1 (Version None)
Quarter: 2004Q3

REPORT INFORMATION
  Report Type: 
  Country: None (occurrence: None)
  Receive Date: 20040702
  Receipt Date: 20040325
  Transmission Date: 20050211
  Serious: Yes (Hospitalization)
  Sender: FDA-Public Use
  Company Number: 2004UW05845

PATIENT

DRUGS (2)
  1. CRESTOR [Suspect]
  2. BENICAR HCT [Suspect]

REACTIONS (1)
  - ASTHENIA [None]
